FAERS Safety Report 23897054 (Version 1)
Quarter: 2024Q2

REPORT INFORMATION
  Report Type: Report from Study
  Country: US (occurrence: US)
  Receive Date: 20240524
  Receipt Date: 20240524
  Transmission Date: 20240716
  Serious: Yes (Hospitalization, Other)
  Sender: FDA-Public Use
  Company Number: US-PFIZER INC-PV202400066786

PATIENT
  Age: 12 Year
  Sex: Female
  Weight: 30 kg

DRUGS (15)
  1. UNASYN [Suspect]
     Active Substance: AMPICILLIN SODIUM\SULBACTAM SODIUM
     Indication: Pneumonia streptococcal
     Dosage: UNK
     Route: 042
     Dates: start: 20240518
  2. AZITHROMYCIN [Suspect]
     Active Substance: AZITHROMYCIN
     Indication: Pneumonia streptococcal
     Dosage: 7 ML, DAILY
     Dates: start: 20240520
  3. AZITHROMYCIN [Suspect]
     Active Substance: AZITHROMYCIN
     Dosage: 3 ML, DAILY
  4. TROFINETIDE [Suspect]
     Active Substance: TROFINETIDE
     Indication: Rett syndrome
     Dosage: 40 ML, 2X/DAY
     Route: 048
  5. TROFINETIDE [Suspect]
     Active Substance: TROFINETIDE
     Dosage: 35 ML, 2X/DAY
     Route: 048
     Dates: start: 20230816
  6. TROFINETIDE [Suspect]
     Active Substance: TROFINETIDE
     Dosage: 40 ML, 2X/DAY
     Route: 048
     Dates: start: 20230823
  7. TROFINETIDE [Suspect]
     Active Substance: TROFINETIDE
     Dosage: 37 ML, 2X/DAY
     Route: 048
  8. TROFINETIDE [Suspect]
     Active Substance: TROFINETIDE
     Dosage: 40 ML, 2X/DAY
     Route: 048
  9. TROFINETIDE [Suspect]
     Active Substance: TROFINETIDE
     Dosage: 37 ML, 2X/DAY
     Route: 048
  10. TROFINETIDE [Suspect]
     Active Substance: TROFINETIDE
     Dosage: 30 ML
     Route: 048
  11. TROFINETIDE [Suspect]
     Active Substance: TROFINETIDE
     Dosage: 40 ML, 2X/DAY
     Route: 048
  12. TROFINETIDE [Suspect]
     Active Substance: TROFINETIDE
     Dosage: 40 ML, 2X/DAY
     Route: 048
  13. FLINTSTONES MULTIPLE VITAMINS [VITAMINS NOS] [Concomitant]
     Dosage: UNK
  14. CULTURELLE PROBIOTICS HEALTH + WELLNESS [Concomitant]
     Dosage: UNK
  15. PREBIOTICS NOS [Concomitant]
     Dosage: UNK

REACTIONS (12)
  - Pneumonia [Not Recovered/Not Resolved]
  - Diarrhoea [Not Recovered/Not Resolved]
  - Cough [Unknown]
  - Pharyngitis streptococcal [Unknown]
  - Diarrhoea [Recovered/Resolved]
  - Weight decreased [Unknown]
  - Weight increased [Unknown]
  - Dermatitis diaper [Unknown]
  - Therapeutic response unexpected [Unknown]
  - Rash [Unknown]
  - Nasopharyngitis [Unknown]
  - Pyrexia [Unknown]

NARRATIVE: CASE EVENT DATE: 20230730
